FAERS Safety Report 6451096-7 (Version None)
Quarter: 2009Q4

REPORT INFORMATION
  Report Type: 
  Country: None (occurrence: None)
  Receive Date: 20091123
  Receipt Date: 20091113
  Transmission Date: 20100525
  Serious: Yes (Other)
  Sender: FDA-Public Use
  Company Number: US-PFIZER INC-2009281336

PATIENT
  Sex: Female
  Weight: 113.39 kg

DRUGS (1)
  1. DEPO-PROVERA [Suspect]
     Indication: CONTRACEPTION
     Dosage: EVERY THREE MONTHS
     Route: 030
     Dates: start: 19990101, end: 20080214

REACTIONS (15)
  - AMENORRHOEA [None]
  - ANXIETY [None]
  - ARTHRALGIA [None]
  - BIPOLAR DISORDER [None]
  - BURNING SENSATION [None]
  - DEPRESSION [None]
  - HYPOAESTHESIA [None]
  - HYPOKINESIA [None]
  - MIGRAINE [None]
  - MUSCULOSKELETAL PAIN [None]
  - MUSCULOSKELETAL STIFFNESS [None]
  - NEOPLASM MALIGNANT [None]
  - PARAESTHESIA [None]
  - RESTLESS LEGS SYNDROME [None]
  - WEIGHT INCREASED [None]
